FAERS Safety Report 25547948 (Version 1)
Quarter: 2025Q3

REPORT INFORMATION
  Report Type: Spontaneous
  Country: CN (occurrence: CN)
  Receive Date: 20250714
  Receipt Date: 20250714
  Transmission Date: 20251021
  Serious: Yes (Other)
  Sender: Kenvue
  Company Number: CN-KENVUE-20250703443

PATIENT

DRUGS (1)
  1. IMODIUM [Suspect]
     Active Substance: LOPERAMIDE HYDROCHLORIDE
     Indication: Brain contusion
     Dosage: 4 MILLIGRAM, ONCE A DAY, (FROM 6 CAPSULES OF 2MG) (SELF-PREPARED MEDICATION, LONG-TERM)
     Dates: start: 20250624, end: 20250629

REACTIONS (3)
  - Pyrexia [Recovering/Resolving]
  - Wrong technique in product usage process [Unknown]
  - Product use in unapproved indication [Unknown]

NARRATIVE: CASE EVENT DATE: 20250624
